FAERS Safety Report 7564792-5 (Version None)
Quarter: 2011Q2

REPORT INFORMATION
  Report Type: 
  Country: None (occurrence: None)
  Receive Date: 20110622
  Receipt Date: 20110110
  Transmission Date: 20111010
  Serious: Yes (Life-Threatening)
  Sender: FDA-Public Use
  Company Number: US-MYLANLABS-2010S1021734

PATIENT
  Age: 30 Year
  Sex: Male

DRUGS (10)
  1. CHEMOTHERAPEUTICS [Concomitant]
  2. LUVOX [Concomitant]
  3. CLOZAPINE [Suspect]
     Indication: PSYCHOTIC DISORDER
     Route: 048
     Dates: start: 20100101, end: 20101119
  4. REGLAN [Concomitant]
  5. COLACE [Concomitant]
     Indication: CONSTIPATION
  6. CLOZAPINE [Suspect]
     Route: 048
     Dates: start: 20100101, end: 20101119
  7. PROPRANOLOL [Concomitant]
  8. LEVOCARNITINE [Concomitant]
  9. ATIVAN [Concomitant]
     Indication: AGITATION
  10. COMPAZINE [Concomitant]

REACTIONS (3)
  - AGRANULOCYTOSIS [None]
  - GRANULOCYTOPENIA [None]
  - LEUKOPENIA [None]
